FAERS Safety Report 5856662-5 (Version None)
Quarter: 2008Q3

REPORT INFORMATION
  Report Type: 
  Country: None (occurrence: None)
  Receive Date: 20080825
  Receipt Date: 20080820
  Transmission Date: 20090109
  Serious: Yes (Death, Life-Threatening, Hospitalization)
  Sender: FDA-Public Use
  Company Number: DE-ABBOTT-08P-062-0471546-00

PATIENT
  Sex: Female
  Weight: 92 kg

DRUGS (11)
  1. REDUCTIL 15MG [Suspect]
     Indication: WEIGHT CONTROL
     Route: 048
     Dates: start: 20070301, end: 20070801
  2. INSULIN [Concomitant]
     Indication: DIABETES MELLITUS
     Dosage: 16-22 UNITS DAILY
     Route: 058
     Dates: start: 20060101, end: 20080601
  3. LEVOTHYROXINE SODIUM [Concomitant]
     Indication: THYROIDECTOMY
     Route: 048
     Dates: end: 20080601
  4. DIGITOXIN INJ [Concomitant]
     Indication: ATRIAL FIBRILLATION
     Route: 048
     Dates: end: 20080601
  5. RAMIPRIL [Concomitant]
     Indication: HYPERTENSION
     Route: 048
     Dates: end: 20080601
  6. HYDROCHLOROTHIAZIDE [Concomitant]
     Indication: HYPERTENSION
     Route: 048
     Dates: end: 20080601
  7. NITRENDIPIN [Concomitant]
     Indication: HYPERTENSION
     Route: 048
     Dates: end: 20080601
  8. BISOPROLOL FUMARATE [Concomitant]
     Indication: HYPERTENSION
     Route: 048
     Dates: end: 20080601
  9. BISOPROLOL FUMARATE [Concomitant]
     Indication: ATRIAL FIBRILLATION
  10. TACHYSTIN KAPSELN [Concomitant]
     Indication: PARATHYROIDECTOMY
     Dosage: 1-2 CAPSULES DAILY
     Route: 048
     Dates: end: 20080601
  11. METFORMIN [Concomitant]
     Indication: DIABETES MELLITUS
     Route: 048
     Dates: end: 20080601

REACTIONS (2)
  - PULMONARY EMBOLISM [None]
  - RENAL CANCER [None]
